FAERS Safety Report 14322358 (Version 4)
Quarter: 2020Q3

REPORT INFORMATION
  Report Type: Spontaneous
  Country: PL (occurrence: PL)
  Receive Date: 20171225
  Receipt Date: 20180919
  Transmission Date: 20201105
  Serious: Yes (Death, Life-Threatening, Hospitalization, Other)
  Sender: FDA-Public Use
  Company Number: PHHY2017PL193026

PATIENT
  Age: 67 Year
  Sex: Female

DRUGS (7)
  1. MEROPENEM. [Suspect]
     Active Substance: MEROPENEM
     Indication: KLEBSIELLA INFECTION
     Dosage: 1 G, TID (1 G, 3X/DAY)
     Route: 042
     Dates: start: 20160510
  2. COLISTIN SULFATE [Suspect]
     Active Substance: COLISTIN SULFATE
     Dosage: 4X1 MILLION UNITS IN NEBULIZATION
     Route: 055
  3. LEVOFLOXACIN. [Concomitant]
     Active Substance: LEVOFLOXACIN
     Indication: PRODUCT USED FOR UNKNOWN INDICATION
     Route: 065
  4. INSULIN [Concomitant]
     Active Substance: INSULIN NOS
     Indication: TYPE 2 DIABETES MELLITUS
     Route: 065
  5. CEFTRIAXONE SODIUM. [Suspect]
     Active Substance: CEFTRIAXONE SODIUM
     Indication: KLEBSIELLA INFECTION
     Dosage: UNK
     Route: 065
  6. COLISTIN SULFATE [Suspect]
     Active Substance: COLISTIN SULFATE
     Indication: KLEBSIELLA INFECTION
     Dosage: 4X2 MILLION UNITS
     Route: 042
  7. AMIKACIN. [Suspect]
     Active Substance: AMIKACIN
     Indication: KLEBSIELLA INFECTION
     Dosage: DOSE: 1250 MG
     Route: 042

REACTIONS (11)
  - Drug ineffective [Fatal]
  - Anuria [Unknown]
  - Klebsiella infection [Unknown]
  - Respiratory acidosis [Unknown]
  - Supraventricular tachycardia [Unknown]
  - Renal impairment [Unknown]
  - Hypoxia [Unknown]
  - Condition aggravated [Unknown]
  - Oedema [Unknown]
  - Death [Fatal]
  - Multiple organ dysfunction syndrome [Fatal]

NARRATIVE: CASE EVENT DATE: 2016
